FAERS Safety Report 7576209-5 (Version None)
Quarter: 2011Q2

REPORT INFORMATION
  Report Type: 
  Country: None (occurrence: None)
  Receive Date: 20110628
  Receipt Date: 20110202
  Transmission Date: 20111010
  Serious: Yes (Other)
  Sender: FDA-Public Use
  Company Number: US-BAYER-201038139NA

PATIENT
  Age: 27 Year
  Sex: Female
  Weight: 88.435 kg

DRUGS (12)
  1. YASMIN [Suspect]
     Indication: MENOMETRORRHAGIA
     Dosage: UNK
     Dates: start: 20030301, end: 20100301
  2. MOTRIN [Concomitant]
     Dosage: UNK
     Dates: start: 20070514
  3. DROSPIRENONE AND ETHINYL ESTRADIOL [Suspect]
     Indication: PRODUCT USED FOR UNKNOWN INDICATION
     Route: 048
     Dates: start: 20081010, end: 20100120
  4. YAZ [Suspect]
     Route: 048
     Dates: start: 20091012, end: 20091222
  5. DROSPIRENONE AND ETHINYL ESTRADIOL [Suspect]
     Dosage: UNK
     Dates: start: 20081001, end: 20100101
  6. ASCORBIC ACID [Concomitant]
     Dosage: UNK
     Dates: start: 19990101
  7. PROZAC [Concomitant]
     Dosage: UNK
     Dates: start: 20061229
  8. TYLENOL-500 [Concomitant]
     Dosage: UNK
     Dates: start: 20070514
  9. YASMIN [Suspect]
     Indication: WEIGHT DECREASED
  10. IBUPROFEN [Concomitant]
     Dosage: UNK
     Dates: start: 20030101
  11. YAZ [Suspect]
     Dosage: UNK
     Dates: start: 20091001, end: 20091201
  12. YASMIN [Suspect]
     Indication: CONTRACEPTION
     Route: 048
     Dates: start: 20030327, end: 20100324

REACTIONS (2)
  - CHOLECYSTITIS CHRONIC [None]
  - GALLBLADDER DISORDER [None]
